FAERS Safety Report 24378134 (Version 3)
Quarter: 2025Q2

REPORT INFORMATION
  Report Type: Spontaneous
  Country: BR (occurrence: BR)
  Receive Date: 20240930
  Receipt Date: 20250602
  Transmission Date: 20250716
  Serious: Yes (Other)
  Sender: MYLAN
  Company Number: BR-MYLANLABS-2024M1086812

PATIENT

DRUGS (1)
  1. ALPRAZOLAM [Suspect]
     Active Substance: ALPRAZOLAM
     Indication: Product used for unknown indication

REACTIONS (4)
  - Drug dependence [Not Recovered/Not Resolved]
  - Nervousness [Not Recovered/Not Resolved]
  - Product use issue [Unknown]
  - Product availability issue [Not Recovered/Not Resolved]
